FAERS Safety Report 6094454-5 (Version None)
Quarter: 2009Q1

REPORT INFORMATION
  Report Type: 
  Country: None (occurrence: None)
  Receive Date: 20090224
  Receipt Date: 20090209
  Transmission Date: 20090719
  Serious: Yes (Hospitalization)
  Sender: FDA-Public Use
  Company Number: 2009S1002324

PATIENT
  Age: 49 Year
  Sex: Female

DRUGS (1)
  1. AMITRIPTYLINE HYDROCHLORIDE [Suspect]
     Dosage: 2500 MG; X1; ORAL
     Route: 048

REACTIONS (2)
  - ARRHYTHMIA [None]
  - CARDIAC ARREST [None]
